FAERS Safety Report 15250743 (Version 1)
Quarter: 2018Q3

REPORT INFORMATION
  Report Type: Spontaneous
  Country: CH (occurrence: CH)
  Receive Date: 20180807
  Receipt Date: 20180807
  Transmission Date: 20181010
  Serious: Yes (Other)
  Sender: FDA-Public Use
  Company Number: PHHY2018CH059806

PATIENT
  Age: 48 Year
  Sex: Female

DRUGS (2)
  1. QUETIAPINE. [Suspect]
     Active Substance: QUETIAPINE
     Indication: PRODUCT USED FOR UNKNOWN INDICATION
     Route: 065
  2. PARACETAMOL [Concomitant]
     Active Substance: ACETAMINOPHEN
     Indication: PRODUCT USED FOR UNKNOWN INDICATION
     Dosage: 65 G, UNK (TWICE WITHIN 8 MONTHS WITH INTENTIONAL INGESTION OF 65 G)
     Route: 065

REACTIONS (3)
  - Coma [Unknown]
  - Hypotonia [Unknown]
  - Toxicity to various agents [Unknown]
